FAERS Safety Report 6193292-2 (Version None)
Quarter: 2009Q2

REPORT INFORMATION
  Report Type: 
  Country: None (occurrence: None)
  Receive Date: 20090514
  Receipt Date: 20090505
  Transmission Date: 20091009
  Serious: Yes (Hospitalization)
  Sender: FDA-Public Use
  Company Number: GXKR2009US05382

PATIENT
  Age: 42 Year
  Sex: Female

DRUGS (7)
  1. VERAPAMIL [Suspect]
     Indication: MIGRAINE
     Dosage: 120 MG, DAILY 3 DFS WITHIN 6 HOURS, TAKEN BY ACCIDENT
  2. VERAPAMIL [Suspect]
     Indication: MIGRAINE
     Dosage: 120 MG, DAILY 3 DFS WITHIN 6 HOURS, TAKEN BY ACCIDENT
  3. GRAPEFRUIT JUICE (CITRUS X PARADISI FRUIT JUICE) [Suspect]
     Dosage: 3-4L, IN THE WEEK PRIOR TO ADMISSION
  4. FIORICET [Concomitant]
  5. TOPIRAMATE [Concomitant]
  6. SUMATRIPTAN (SUMATRIPTANE) [Concomitant]
  7. AMITRIPTYLINE HYDROCHLORIDE [Concomitant]

REACTIONS (13)
  - ACCIDENTAL OVERDOSE [None]
  - ATRIOVENTRICULAR BLOCK COMPLETE [None]
  - BLOOD PRESSURE SYSTOLIC DECREASED [None]
  - DEPRESSED LEVEL OF CONSCIOUSNESS [None]
  - DRUG LEVEL INCREASED [None]
  - DRUG TOXICITY [None]
  - FOOD INTERACTION [None]
  - HEADACHE [None]
  - HYPERGLYCAEMIA [None]
  - HYPOXIA [None]
  - METABOLIC ACIDOSIS [None]
  - PALPITATIONS [None]
  - RESPIRATORY FAILURE [None]
